FAERS Safety Report 7163964-1 (Version None)
Quarter: 2010Q4

REPORT INFORMATION
  Report Type: 
  Country: None (occurrence: None)
  Receive Date: 20101215
  Receipt Date: 20101203
  Transmission Date: 20110411
  Serious: Yes (Hospitalization, Congenital Anomaly)
  Sender: FDA-Public Use
  Company Number: A0681193A

PATIENT
  Sex: Male
  Weight: 2.5 kg

DRUGS (3)
  1. PAXIL [Suspect]
     Indication: DEPRESSION
     Dosage: 40MG PER DAY
     Dates: end: 20030101
  2. PAXIL CR [Suspect]
     Indication: DEPRESSION
  3. PRENATAL VITAMINS [Concomitant]

REACTIONS (4)
  - CONGENITAL HYDROCEPHALUS [None]
  - CONGENITAL HYDRONEPHROSIS [None]
  - DRUG EXPOSURE DURING PREGNANCY [None]
  - SPINA BIFIDA [None]
